FAERS Safety Report 6144240-2 (Version None)
Quarter: 2009Q2

REPORT INFORMATION
  Report Type: 
  Country: None (occurrence: None)
  Receive Date: 20090406
  Receipt Date: 20090406
  Transmission Date: 20091009
  Serious: Yes (Hospitalization, Disabling)
  Sender: FDA-Public Use
  Company Number: PHHO2005IT05372

PATIENT
  Sex: Female
  Weight: 52 kg

DRUGS (2)
  1. CGS 20267 T30748+ [Suspect]
     Indication: BREAST CANCER
     Dosage: 2.5 MG, QD
     Route: 048
  2. TAMOXIFEN CITRATE [Suspect]
     Dosage: 20 MG, QD
     Dates: start: 20020912

REACTIONS (8)
  - CEREBRAL HAEMATOMA [None]
  - CONVULSION [None]
  - FALL [None]
  - HEMIPARESIS [None]
  - HUMERUS FRACTURE [None]
  - JOINT ARTHROPLASTY [None]
  - MOBILITY DECREASED [None]
  - SCAPULA FRACTURE [None]
